FAERS Safety Report 20855563 (Version 1)
Quarter: 2022Q2

REPORT INFORMATION
  Report Type: Report from Study
  Country: ES (occurrence: ES)
  Receive Date: 20220520
  Receipt Date: 20220520
  Transmission Date: 20220721
  Serious: Yes (Hospitalization, Other)
  Sender: FDA-Public Use
  Company Number: ES-FERRINGPH-2022FE02177

PATIENT
  Age: 73 Year
  Sex: Male

DRUGS (6)
  1. MESALAMINE [Suspect]
     Active Substance: MESALAMINE
     Indication: Colitis ulcerative
     Dosage: UNK
     Route: 065
     Dates: start: 2012
  2. MESALAMINE [Suspect]
     Active Substance: MESALAMINE
     Indication: Colitis
     Dosage: 4 GRAM
     Route: 048
     Dates: start: 201611
  3. MESALAMINE [Suspect]
     Active Substance: MESALAMINE
     Indication: Segmental diverticular colitis
  4. METHOTREXATE [Concomitant]
     Active Substance: METHOTREXATE
     Indication: Rheumatoid arthritis
     Dosage: UNK
  5. RIFAXIMIN [Concomitant]
     Active Substance: RIFAXIMIN
     Indication: Colitis
     Dosage: UNK
  6. RIFAXIMIN [Concomitant]
     Active Substance: RIFAXIMIN
     Dosage: UNK
     Dates: start: 2012

REACTIONS (4)
  - Diarrhoea haemorrhagic [Unknown]
  - Off label use [Unknown]
  - Pulmonary embolism [Unknown]
  - Product use in unapproved indication [Unknown]

NARRATIVE: CASE EVENT DATE: 20120101
